FAERS Safety Report 7502991-9 (Version None)
Quarter: 2011Q2

REPORT INFORMATION
  Report Type: 
  Country: None (occurrence: None)
  Receive Date: 20110525
  Receipt Date: 20100922
  Transmission Date: 20111010
  Serious: No
  Sender: FDA-Public Use
  Company Number: US-NOVEN-ALL1-2010-05014

PATIENT
  Sex: Male
  Weight: 36.281 kg

DRUGS (5)
  1. INFLUENZA [Concomitant]
     Dosage: UNK, ONE DOSE
     Route: 030
     Dates: start: 20100922, end: 20100922
  2. DAYTRANA [Suspect]
     Dosage: 15 MG, 1X/DAY:QD
     Route: 062
  3. ALBUTEROL [Concomitant]
     Dosage: UNK, AS REQ'D
     Route: 055
  4. DAYTRANA [Suspect]
     Dosage: 10 MG, 1X/DAY:QD
     Route: 062
     Dates: start: 20080101
  5. SYMBICORT [Concomitant]
     Dosage: UNK, 2X/DAY:BID ( 2 PUFFS)
     Route: 050

REACTIONS (4)
  - INCORRECT DRUG ADMINISTRATION DURATION [None]
  - PRODUCT QUALITY ISSUE [None]
  - DRUG INEFFECTIVE [None]
  - APPLICATION SITE ERYTHEMA [None]
